FAERS Safety Report 24004141 (Version 1)
Quarter: 2024Q2

REPORT INFORMATION
  Report Type: Spontaneous
  Country: US (occurrence: US)
  Receive Date: 20240624
  Receipt Date: 20240624
  Transmission Date: 20240715
  Serious: Yes (Life-Threatening, Hospitalization)
  Sender: FDA-Public Use
  Company Number: US-MLMSERVICE-20240613-PI089834-00101-4

PATIENT
  Age: 2 Year
  Sex: Male

DRUGS (1)
  1. CISPLATIN [Suspect]
     Active Substance: CISPLATIN
     Indication: Hepatoblastoma
     Dosage: MONOTHERAPY

REACTIONS (4)
  - Cardiac arrest [Unknown]
  - Bradycardia [Unknown]
  - Infection [Unknown]
  - Off label use [Unknown]
